FAERS Safety Report 7200484-X (Version None)
Quarter: 2010Q4

REPORT INFORMATION
  Report Type: 
  Country: None (occurrence: None)
  Receive Date: 20101228
  Receipt Date: 20101221
  Transmission Date: 20110411
  Serious: Yes (Death, Other)
  Sender: FDA-Public Use
  Company Number: US-PFIZER INC-2010176903

PATIENT
  Sex: Female

DRUGS (2)
  1. NEURONTIN [Suspect]
     Indication: PAIN IN EXTREMITY
     Dosage: UNK
     Dates: end: 20101206
  2. NEURONTIN [Suspect]
     Indication: RESTLESS LEGS SYNDROME

REACTIONS (3)
  - COMA [None]
  - DEATH [None]
  - DIABETES MELLITUS [None]
